FAERS Safety Report 16247859 (Version 10)
Quarter: 2019Q3

REPORT INFORMATION
  Report Type: Spontaneous
  Country: CA (occurrence: CA)
  Receive Date: 20190428
  Receipt Date: 20190927
  Transmission Date: 20191004
  Serious: Yes (Hospitalization, Other)
  Sender: FDA-Public Use
  Company Number: CA-AKCEA THERAPEUTICS-2019IS001434

PATIENT

DRUGS (10)
  1. CODEINE [Concomitant]
     Active Substance: CODEINE
     Indication: DIARRHOEA
     Dosage: 15 MG, QOD, UP TO 3-4 DOSES PER DAY PRN
     Route: 048
  2. FUROSEMIDE. [Concomitant]
     Active Substance: FUROSEMIDE
     Indication: OEDEMA
  3. MULTIVITAMIN                       /00097801/ [Concomitant]
     Active Substance: VITAMINS
     Indication: GENERAL SYMPTOM
     Dosage: 1 DF, UNK
     Route: 048
  4. BISOPROLOL [Concomitant]
     Active Substance: BISOPROLOL
     Indication: CARDIAC DISORDER
     Dosage: 2.5 MG, QD
     Route: 048
  5. TURMERIC                           /01079602/ [Concomitant]
     Active Substance: HERBALS\TURMERIC
     Indication: FAMILIAL AMYLOIDOSIS
     Dosage: 1000 MG, QD
     Route: 048
  6. FUROSEMIDE. [Concomitant]
     Active Substance: FUROSEMIDE
     Indication: PULMONARY OEDEMA
     Dosage: 20 MG, QOD, OR DAILY PRN OR IF PATIENT HAS EPISODES OF DIFFICULTY BREATHING
     Route: 048
  7. TEGSEDI [Suspect]
     Active Substance: INOTERSEN SODIUM
     Dosage: 284 MG, QW
     Route: 058
     Dates: start: 20190211
  8. TEA, GREEN [Concomitant]
     Active Substance: GREEN TEA LEAF
     Indication: FAMILIAL AMYLOIDOSIS
     Dosage: 700 MG, QD
     Route: 048
  9. TEGSEDI [Suspect]
     Active Substance: INOTERSEN SODIUM
     Indication: FAMILIAL AMYLOIDOSIS
     Dosage: 284 MG, QW
     Route: 058
     Dates: start: 20190211
  10. AMITRIPTYLINE [Concomitant]
     Active Substance: AMITRIPTYLINE
     Indication: AMYLOIDOSIS
     Dosage: 25 MG, QD
     Route: 048

REACTIONS (24)
  - Cardiac failure congestive [Recovered/Resolved]
  - Thrombocytopenia [Not Recovered/Not Resolved]
  - Decreased appetite [Not Recovered/Not Resolved]
  - Haematocrit decreased [Not Recovered/Not Resolved]
  - Contusion [Not Recovered/Not Resolved]
  - Haemoglobin abnormal [Not Recovered/Not Resolved]
  - Red blood cell count abnormal [Not Recovered/Not Resolved]
  - Lymphocyte count decreased [Not Recovered/Not Resolved]
  - Platelet count decreased [Not Recovered/Not Resolved]
  - Peripheral swelling [Recovering/Resolving]
  - Haemoglobin decreased [Not Recovered/Not Resolved]
  - Neutrophil count decreased [Unknown]
  - Haematocrit abnormal [Not Recovered/Not Resolved]
  - Red blood cell count decreased [Not Recovered/Not Resolved]
  - Frequent bowel movements [Not Recovered/Not Resolved]
  - Protein total decreased [Not Recovered/Not Resolved]
  - White blood cell count decreased [Unknown]
  - Chest discomfort [Recovered/Resolved]
  - Dysgeusia [Not Recovered/Not Resolved]
  - Feeling abnormal [Not Recovered/Not Resolved]
  - Weight increased [Not Recovered/Not Resolved]
  - Abdominal pain [Not Recovered/Not Resolved]
  - Abdominal distension [Not Recovered/Not Resolved]
  - Basophil count decreased [Unknown]

NARRATIVE: CASE EVENT DATE: 2019
